FAERS Safety Report 5089162-3 (Version None)
Quarter: 2006Q3

REPORT INFORMATION
  Report Type: 
  Country: None (occurrence: None)
  Receive Date: 20060822
  Receipt Date: 20060807
  Transmission Date: 20061208
  Serious: Yes (Hospitalization)
  Sender: FDA-Public Use
  Company Number: FR200608001373

PATIENT
  Age: 75 Year
  Sex: Female

DRUGS (3)
  1. FORTEO [Suspect]
     Indication: OSTEOPOROSIS
     Dosage: 20 UG, DAILY (1/D), SUBCUTANEOUS
     Route: 058
     Dates: start: 20060615, end: 20060804
  2. FORTEO PEN (FORTEO PEN) [Concomitant]
  3. MORPHINE SULFATE [Concomitant]

REACTIONS (3)
  - FALL [None]
  - FEMORAL NECK FRACTURE [None]
  - VOMITING [None]
